FAERS Safety Report 7676471-4 (Version None)
Quarter: 2011Q3

REPORT INFORMATION
  Report Type: 
  Country: None (occurrence: None)
  Receive Date: 20110809
  Receipt Date: 20110809
  Transmission Date: 20111222
  Serious: Yes (Hospitalization)
  Sender: FDA-Public Use
  Company Number: None

PATIENT
  Sex: Female
  Weight: 45 kg

DRUGS (7)
  1. ALDACTONE [Concomitant]
  2. PREDNISONE [Concomitant]
  3. VENOFER [Suspect]
     Indication: IRON DEFICIENCY ANAEMIA
     Dosage: 100 MG ONCE IV INFUSION
     Route: 042
     Dates: start: 20110607
  4. VENOFER [Suspect]
     Indication: IRON DEFICIENCY ANAEMIA
     Dosage: 100 MG ONCE IV INFUSION
     Route: 042
     Dates: start: 20110531
  5. COUMADIN [Concomitant]
  6. TRACLEER [Concomitant]
  7. DIGOXIN [Concomitant]

REACTIONS (6)
  - APHASIA [None]
  - DIZZINESS [None]
  - CHEST DISCOMFORT [None]
  - ASTHENIA [None]
  - HYPOAESTHESIA [None]
  - BLOOD PRESSURE INCREASED [None]
